FAERS Safety Report 8915562 (Version 2)
Quarter: 2013Q1

REPORT INFORMATION
  Report Type: Spontaneous
  Country: FR (occurrence: FR)
  Receive Date: 20121119
  Receipt Date: 20130129
  Transmission Date: 20140127
  Serious: Yes (Congenital Anomaly, Other)
  Sender: FDA-Public Use
  Company Number: FR-PFIZER INC-2012285296

PATIENT
  Sex: Female

DRUGS (6)
  1. DOSTINEX [Suspect]
     Dosage: 0.5 MG, WEEKLY
     Route: 064
     Dates: start: 20071005, end: 20090930
  2. PARLODEL [Concomitant]
     Dosage: 2.5 MG, 1X/DAY
     Route: 064
     Dates: start: 20091001
  3. LEVOTHYROX [Concomitant]
     Dosage: 75 UG, 1X/DAY
     Route: 064
     Dates: start: 2006
  4. PRE-PAR [Concomitant]
     Indication: PREMATURE LABOUR
     Dosage: 6 - 8 TABLETS PER DAY
     Route: 064
  5. SALBUTAMOL [Concomitant]
     Dosage: UNK
     Route: 064
  6. VACCINE H1N1 [Concomitant]
     Dosage: UNK
     Route: 064
     Dates: start: 200912

REACTIONS (3)
  - Maternal exposure timing unspecified [Unknown]
  - Megacolon [Unknown]
  - Congenital genital malformation female [Unknown]
